FAERS Safety Report 16821273 (Version 1)
Quarter: 2019Q4

REPORT INFORMATION
  Report Type: Spontaneous
  Country: US (occurrence: US)
  Receive Date: 20190917
  Receipt Date: 20190917
  Transmission Date: 20200122
  Serious: Yes (Other)
  Sender: FDA-Public Use
  Company Number: None

PATIENT
  Age: 56 Year
  Sex: Female
  Weight: 55.34 kg

DRUGS (3)
  1. PREGABALIN. [Suspect]
     Active Substance: PREGABALIN
     Indication: MYELOPATHY
     Route: 048
     Dates: start: 20190904, end: 20190910
  2. PREGABALIN. [Suspect]
     Active Substance: PREGABALIN
     Indication: HYPOVITAMINOSIS
     Route: 048
     Dates: start: 20190904, end: 20190910
  3. PREGABALLIN 50 MG TABLETS [Concomitant]

REACTIONS (4)
  - Confusional state [None]
  - Product substitution issue [None]
  - Palpitations [None]
  - Headache [None]

NARRATIVE: CASE EVENT DATE: 20190909
